FAERS Safety Report 5135875-4 (Version None)
Quarter: 2006Q4

REPORT INFORMATION
  Report Type: 
  Country: None (occurrence: None)
  Receive Date: 20061020
  Receipt Date: 20061006
  Transmission Date: 20070319
  Serious: Yes (Hospitalization)
  Sender: FDA-Public Use
  Company Number: 2006001810

PATIENT
  Age: 69 Year
  Sex: Female
  Weight: 49 kg

DRUGS (14)
  1. ERLOTINIB (TABLET) [Suspect]
     Indication: PANCREATIC CARCINOMA
     Dosage: 150 MG (QD), ORAL
     Route: 048
     Dates: start: 20060802, end: 20060913
  2. CAPECITABINE [Suspect]
     Indication: PANCREATIC CARCINOMA
     Dosage: 1150 MG (BID)
     Dates: start: 20060802, end: 20060825
  3. PANCREASE (PANCRELIPASE) [Concomitant]
  4. PROTONIX [Concomitant]
  5. ZOLOFT [Concomitant]
  6. KLONOPIN [Concomitant]
  7. BENADRYL [Concomitant]
  8. DILAUDID [Concomitant]
  9. CIPRO [Concomitant]
  10. IBANDRONATE [Concomitant]
  11. PROCRIT [Concomitant]
  12. PHENERGAN (PROMETHAZINE HYDROCHLORIDE) [Concomitant]
  13. ZOFRAN [Concomitant]
  14. COMPAZINE [Concomitant]

REACTIONS (3)
  - FISTULA [None]
  - INCISION SITE COMPLICATION [None]
  - PYREXIA [None]
